FAERS Safety Report 8543779-X (Version None)
Quarter: 2012Q3

REPORT INFORMATION
  Report Type: 
  Country: None (occurrence: None)
  Receive Date: 20120727
  Receipt Date: 20120717
  Transmission Date: 20120928
  Serious: Yes (Hospitalization)
  Sender: FDA-Public Use
  Company Number: AT-JNJFOC-20120709175

PATIENT
  Age: 85 Year
  Sex: Male

DRUGS (3)
  1. LOPERAMIDE [Suspect]
     Indication: DIARRHOEA
     Dosage: FOR 2 DAYS
     Route: 065
  2. DABIGATRAN [Interacting]
     Indication: CEREBROVASCULAR ACCIDENT PROPHYLAXIS
     Route: 048
  3. ANTIBIOTICS UNSPECIFIED [Interacting]
     Indication: URINARY TRACT INFECTION
     Route: 065

REACTIONS (2)
  - DRUG INTERACTION [None]
  - HAEMATURIA [None]
